FAERS Safety Report 24428921 (Version 1)
Quarter: 2024Q4

REPORT INFORMATION
  Report Type: Spontaneous
  Country: US (occurrence: None)
  Receive Date: 20241011
  Receipt Date: 20241011
  Transmission Date: 20250115
  Serious: Yes (Hospitalization, Disabling, Other)
  Sender: Public
  Company Number: None

PATIENT
  Age: 75 Year
  Sex: Female
  Weight: 55.35 kg

DRUGS (8)
  1. PROLIA [Suspect]
     Active Substance: DENOSUMAB
     Indication: Osteoporosis
     Dosage: OTHER QUANTITY : 1 INJECTION(S);?OTHER FREQUENCY : 2X PER YEAR;?
     Route: 058
     Dates: start: 20210301, end: 20240610
  2. MONTELUKAST SODIUM [Concomitant]
  3. MYRBETRIQ [Concomitant]
  4. Itrapropium [Concomitant]
  5. Bromide nasal spray [Concomitant]
  6. Zyrtec [Concomitant]
  7. CALCIUM\VITAMIN D [Concomitant]
     Active Substance: CALCIUM\VITAMIN D
  8. ACETAMINOPHEN [Concomitant]

REACTIONS (5)
  - Femur fracture [None]
  - Stress fracture [None]
  - Gait inability [None]
  - Loss of personal independence in daily activities [None]
  - Pain [None]

NARRATIVE: CASE EVENT DATE: 20240610
